FAERS Safety Report 10258183 (Version 3)
Quarter: 2014Q3

REPORT INFORMATION
  Report Type: Spontaneous
  Country: GB (occurrence: GB)
  Receive Date: 20140625
  Receipt Date: 20140718
  Transmission Date: 20150326
  Serious: Yes (Hospitalization)
  Sender: FDA-Public Use
  Company Number: GB-ASTRAZENECA-2014SE45886

PATIENT
  Age: 23685 Day
  Sex: Female

DRUGS (16)
  1. PEPTAC [Concomitant]
     Dosage: AS REQUIRED AT NIGHT
  2. ANTIBIOTICS [Concomitant]
     Active Substance: UNSPECIFIED INGREDIENT
     Indication: KIDNEY INFECTION
     Dates: start: 20140503
  3. TRAMADOL [Concomitant]
     Active Substance: TRAMADOL
  4. GABAPENTIN. [Concomitant]
     Active Substance: GABAPENTIN
  5. PANADOL ADVANCE [Concomitant]
  6. NAPROXEN. [Concomitant]
     Active Substance: NAPROXEN
  7. OROMORPHINE [Concomitant]
  8. DIAZEPAM. [Concomitant]
     Active Substance: DIAZEPAM
  9. ANTIEMETIC [Concomitant]
  10. NEXIUM [Suspect]
     Active Substance: ESOMEPRAZOLE MAGNESIUM
     Indication: HIATUS HERNIA
     Route: 048
  11. CODEINE [Concomitant]
     Active Substance: CODEINE
  12. NEXIUM [Suspect]
     Active Substance: ESOMEPRAZOLE MAGNESIUM
     Indication: HIATUS HERNIA
     Route: 048
     Dates: start: 20140502
  13. IMIGRAN [Concomitant]
     Active Substance: SUMATRIPTAN SUCCINATE
  14. BUSCOPAN [Concomitant]
     Active Substance: BUTYLSCOPOLAMINE BROMIDE
  15. PAINKILLERS [Concomitant]
     Active Substance: UNSPECIFIED INGREDIENT
  16. ACYCLOVIR. [Concomitant]
     Active Substance: ACYCLOVIR

REACTIONS (12)
  - Back pain [Unknown]
  - Fall [Unknown]
  - Intervertebral disc degeneration [Unknown]
  - Contusion [Unknown]
  - Herpes zoster [Unknown]
  - Vomiting [Unknown]
  - Off label use [Unknown]
  - Neck pain [Unknown]
  - Urinary tract infection [Unknown]
  - Renal colic [Unknown]
  - Pain [Unknown]
  - Intentional product misuse [Unknown]

NARRATIVE: CASE EVENT DATE: 20140502
